FAERS Safety Report 7715414-1 (Version None)
Quarter: 2011Q3

REPORT INFORMATION
  Report Type: 
  Country: None (occurrence: None)
  Receive Date: 20110810
  Receipt Date: 20110615
  Transmission Date: 20111222
  Serious: Yes (Hospitalization)
  Sender: FDA-Public Use
  Company Number: 1000021183

PATIENT
  Age: 68 Year
  Sex: Female

DRUGS (7)
  1. SAVELLA [Suspect]
     Indication: DEPRESSION
     Dosage: 12.5 MG (12.5 MG, 1 IN 1 D), ORAL
     Route: 048
     Dates: end: 20110101
  2. SAVELLA [Suspect]
     Indication: ANXIETY
     Dosage: 12.5 MG (12.5 MG, 1 IN 1 D), ORAL
     Route: 048
     Dates: end: 20110101
  3. SAVELLA [Suspect]
     Indication: FIBROMYALGIA
     Dosage: 12.5 MG (12.5 MG, 1 IN 1 D), ORAL
     Route: 048
     Dates: end: 20110101
  4. SAVELLA [Suspect]
     Indication: DEPRESSION
     Dosage: 12.5 MG (12.5 MG, 1 IN 1 D), ORAL
     Route: 048
     Dates: start: 20110419, end: 20110101
  5. SAVELLA [Suspect]
     Indication: ANXIETY
     Dosage: 12.5 MG (12.5 MG, 1 IN 1 D), ORAL
     Route: 048
     Dates: start: 20110419, end: 20110101
  6. SAVELLA [Suspect]
     Indication: FIBROMYALGIA
     Dosage: 12.5 MG (12.5 MG, 1 IN 1 D), ORAL
     Route: 048
     Dates: start: 20110419, end: 20110101
  7. LYRICA [Suspect]

REACTIONS (1)
  - GRAND MAL CONVULSION [None]
